FAERS Safety Report 8016620-1 (Version None)
Quarter: 2011Q4

REPORT INFORMATION
  Report Type: 
  Country: None (occurrence: None)
  Receive Date: 20111231
  Receipt Date: 20111222
  Transmission Date: 20120403
  Serious: Yes (Other)
  Sender: FDA-Public Use
  Company Number: CHPA2011US018025

PATIENT
  Age: 60 Year
  Sex: Female

DRUGS (1)
  1. KERI ORIGINAL [Suspect]
     Indication: THERAPEUTIC SKIN CARE TOPICAL
     Dosage: UNK, UNK
     Route: 061

REACTIONS (2)
  - THERAPEUTIC RESPONSE UNEXPECTED [None]
  - LYMPHOMA [None]
